FAERS Safety Report 9268530 (Version 2)
Quarter: 2013Q2

REPORT INFORMATION
  Report Type: Spontaneous
  Country: US (occurrence: US)
  Receive Date: 20130502
  Receipt Date: 20130607
  Transmission Date: 20140414
  Serious: Yes (Hospitalization, Other)
  Sender: FDA-Public Use
  Company Number: US-B.I. PHARMACEUTICALS,INC./RIDGEFIELD-2013-BI-12176BP

PATIENT
  Age: 63 Year
  Sex: Female
  Weight: 65.77 kg

DRUGS (13)
  1. PRADAXA [Suspect]
     Indication: ANTICOAGULANT THERAPY
     Dosage: 300 MG
     Route: 048
     Dates: start: 20110806
  2. PRADAXA [Suspect]
     Indication: ATRIAL FIBRILLATION
  3. ESTRACE [Concomitant]
     Dosage: 1 MG
     Route: 048
  4. LASIX [Concomitant]
     Dosage: 40 MG
     Route: 048
  5. LEVOXYL [Concomitant]
     Dosage: 0.112 MG
     Route: 048
  6. METOPROLOL [Concomitant]
     Dosage: 25 MG
     Route: 048
  7. PROTONIX [Concomitant]
     Dosage: 40 MG
     Route: 048
  8. RESTORIL [Concomitant]
     Route: 048
  9. RYTHMOL [Concomitant]
     Indication: ATRIAL FIBRILLATION
     Dosage: 450 MG
     Route: 048
  10. TRAMADOL [Concomitant]
     Route: 048
  11. VOLTAREN [Concomitant]
     Dosage: 100 MG
     Route: 048
  12. VYTORIN [Concomitant]
     Route: 048
  13. ZYRTEC [Concomitant]
     Dosage: 10 MG
     Route: 048

REACTIONS (6)
  - Haematuria [Unknown]
  - Gastrointestinal haemorrhage [Unknown]
  - Anaemia [Unknown]
  - International normalised ratio increased [Unknown]
  - Renal mass [Unknown]
  - Increased tendency to bruise [Unknown]
